FAERS Safety Report 9156673 (Version 5)
Quarter: 2013Q4

REPORT INFORMATION
  Report Type: Report from Study
  Country: US (occurrence: US)
  Receive Date: 20130312
  Receipt Date: 20131022
  Transmission Date: 20140711
  Serious: Yes (Hospitalization)
  Sender: FDA-Public Use
  Company Number: US-JNJFOC-20130302893

PATIENT
  Age: 16 Year
  Sex: Female
  Weight: 46 kg

DRUGS (6)
  1. REMICADE [Suspect]
     Indication: INFLAMMATORY BOWEL DISEASE
     Route: 042
     Dates: start: 200910, end: 20110227
  2. HUMIRA [Concomitant]
     Route: 065
     Dates: start: 20111215
  3. NEXIUM [Concomitant]
     Route: 065
  4. STRATTERA [Concomitant]
     Route: 065
  5. ZOLOFT [Concomitant]
     Route: 065
  6. TYLENOL [Concomitant]

REACTIONS (1)
  - Crohn^s disease [Recovered/Resolved]
